FAERS Safety Report 5087739-2 (Version None)
Quarter: 2006Q3

REPORT INFORMATION
  Report Type: 
  Country: None (occurrence: None)
  Receive Date: 20060824
  Receipt Date: 20060821
  Transmission Date: 20061208
  Serious: Yes (Death, Other)
  Sender: FDA-Public Use
  Company Number: 2006GB01461

PATIENT
  Sex: Male

DRUGS (6)
  1. QUETIAPINE FUMARATE [Suspect]
     Indication: DEPRESSION
     Route: 048
  2. CLOMIPRAMINE HCL [Suspect]
     Indication: DEPRESSION
     Route: 048
  3. ARTHROTEC [Concomitant]
     Route: 048
  4. LANSOPRAZOLE [Concomitant]
     Indication: GASTRITIS
     Route: 048
  5. MEBEVERINE [Concomitant]
     Indication: IRRITABLE BOWEL SYNDROME
     Route: 048
  6. ZOLPIDEM [Concomitant]
     Indication: INSOMNIA
     Route: 048

REACTIONS (2)
  - INTESTINAL OBSTRUCTION [None]
  - MULTI-ORGAN FAILURE [None]
